FAERS Safety Report 7647869-5 (Version None)
Quarter: 2011Q3

REPORT INFORMATION
  Report Type: 
  Country: None (occurrence: None)
  Receive Date: 20110801
  Receipt Date: 20110728
  Transmission Date: 20111222
  Serious: Yes (Life-Threatening, Other)
  Sender: FDA-Public Use
  Company Number: US-ASTRAZENECA-2011SE45109

PATIENT
  Age: 39 Year
  Sex: Male

DRUGS (4)
  1. WELLBUTRIN [Suspect]
     Route: 065
  2. SYMBICORT [Concomitant]
  3. NEXIUM [Suspect]
     Route: 048
  4. SEROQUEL [Concomitant]

REACTIONS (3)
  - DEPRESSION [None]
  - ANXIETY [None]
  - SUICIDE ATTEMPT [None]
